FAERS Safety Report 14823114 (Version 1)
Quarter: 2018Q2

REPORT INFORMATION
  Report Type: Spontaneous
  Country: None (occurrence: FR)
  Receive Date: 20180427
  Receipt Date: 20180427
  Transmission Date: 20180711
  Serious: Yes (Other)
  Sender: FDA-Public Use
  Company Number: FR-ALSI-201800308

PATIENT
  Age: 59 Year
  Sex: Male

DRUGS (16)
  1. PREGABALINA [Concomitant]
     Active Substance: PREGABALIN
     Dates: start: 20180411, end: 20180411
  2. ATENOLOL. [Concomitant]
     Active Substance: ATENOLOL
     Dates: start: 20180411, end: 20180411
  3. AMOXICILLIN. [Concomitant]
     Active Substance: AMOXICILLIN
     Dates: start: 20180411, end: 20180413
  4. FOLIC ACID. [Concomitant]
     Active Substance: FOLIC ACID
     Dates: start: 20180411, end: 20180411
  5. AMOXICILIN/CLAVULANIC ACID [Concomitant]
     Dates: start: 20180410, end: 20180413
  6. ERYTHROMYCIN. [Concomitant]
     Active Substance: ERYTHROMYCIN
     Dates: start: 20180412, end: 20180412
  7. OXYGEN. [Suspect]
     Active Substance: OXYGEN
     Indication: PRODUCT USED FOR UNKNOWN INDICATION
     Route: 055
  8. NEFOPAM [Concomitant]
     Active Substance: NEFOPAM
     Dates: start: 20180411, end: 20180411
  9. CEFOTAXIME [Concomitant]
     Active Substance: CEFOTAXIME SODIUM
     Dates: start: 20180412, end: 20180412
  10. ACETYLSALICYLIC ACID [Concomitant]
     Active Substance: ASPIRIN
     Dates: start: 20180411, end: 20180411
  11. COLCHICINE. [Concomitant]
     Active Substance: COLCHICINE
     Dates: start: 20180412, end: 20180415
  12. HEPARIN SODIUM. [Concomitant]
     Active Substance: HEPARIN SODIUM
     Dates: start: 20180411, end: 20180417
  13. TRAMADOL. [Concomitant]
     Active Substance: TRAMADOL
     Dates: start: 20180411, end: 20180411
  14. SALBUTAMOL [Concomitant]
     Active Substance: ALBUTEROL
     Dates: start: 20180413, end: 20180413
  15. FUROSEMIDE. [Concomitant]
     Active Substance: FUROSEMIDE
     Dates: start: 20180413, end: 20180417
  16. LINEZOLID. [Concomitant]
     Active Substance: LINEZOLID
     Dates: start: 20180412, end: 20180412

REACTIONS (2)
  - Oxygen saturation decreased [Recovered/Resolved]
  - Medication error [Recovered/Resolved]

NARRATIVE: CASE EVENT DATE: 20180413
